FAERS Safety Report 22220808 (Version 3)
Quarter: 2023Q2

REPORT INFORMATION
  Report Type: Spontaneous
  Country: US (occurrence: US)
  Receive Date: 20230418
  Receipt Date: 20230524
  Transmission Date: 20230722
  Serious: No
  Sender: FDA-Public Use
  Company Number: US-GLAXOSMITHKLINE-USCH2023016694

PATIENT

DRUGS (4)
  1. NICORETTE [Suspect]
     Active Substance: NICOTINE
     Indication: Product used for unknown indication
     Dosage: UNK
     Dates: start: 20230318, end: 20230318
  2. NICORETTE [Suspect]
     Active Substance: NICOTINE
     Dosage: UNK
     Dates: start: 20230320, end: 20230320
  3. NICORETTE [Suspect]
     Active Substance: NICOTINE
     Dosage: UNK
     Dates: start: 20230412, end: 20230412
  4. NICORETTE [Suspect]
     Active Substance: NICOTINE
     Dosage: UNK
     Dates: start: 20230521, end: 20230521

REACTIONS (1)
  - Drug ineffective [Unknown]
